FAERS Safety Report 9173937 (Version 1)
Quarter: 2013Q1

REPORT INFORMATION
  Report Type: Spontaneous
  Country: US (occurrence: None)
  Receive Date: 20130318
  Receipt Date: 20130318
  Transmission Date: 20140127
  Serious: Yes (Other)
  Sender: FDA-Public Use
  Company Number: 001492462A

PATIENT
  Age: 16 Year
  Sex: Female

DRUGS (7)
  1. PROACTIV RENEWING CLEANSER [Suspect]
     Indication: ACNE
     Route: 023
     Dates: start: 20130223
  2. PROACTIV RENEWING CLEANSER [Suspect]
     Indication: ACNE
     Route: 023
     Dates: start: 20130223
  3. PROACTIV RENEWING CLEANSER [Suspect]
     Route: 023
     Dates: start: 20130223
  4. PROACTIV RENEWING CLEANSER [Suspect]
     Route: 023
     Dates: start: 20130223
  5. PROACTIV REPAIRING TREATMENT [Suspect]
     Indication: ACNE
     Dates: start: 20130223
  6. PROACTIV ADVANCED BLEMISH TREATMENT [Suspect]
     Dates: start: 20130223
  7. PROACTIV DEEP CLEANSING WASH [Suspect]
     Dates: start: 20130223

REACTIONS (3)
  - Erythema [None]
  - Rash macular [None]
  - Swelling face [None]
